FAERS Safety Report 6061761-1 (Version None)
Quarter: 2009Q1

REPORT INFORMATION
  Report Type: 
  Country: None (occurrence: None)
  Receive Date: 20090202
  Receipt Date: 20090119
  Transmission Date: 20090719
  Serious: Yes (Hospitalization, Other)
  Sender: FDA-Public Use
  Company Number: US-TYCO HEALTHCARE/MALLINCKRODT-T200900075

PATIENT
  Sex: Male

DRUGS (11)
  1. MORPHINE ORAL CONCENTRATE [Suspect]
     Indication: PAIN
     Dosage: 2 ML (40 MG), SINGLE
     Route: 042
     Dates: start: 20090101, end: 20090101
  2. SOLU-MEDROL [Concomitant]
     Indication: DRUG USE FOR UNKNOWN INDICATION
     Dosage: 62.5 MG, Q 8 HRS.
     Dates: end: 20090116
  3. VANCOMYCIN [Concomitant]
     Indication: DRUG USE FOR UNKNOWN INDICATION
     Dosage: 2 G, SINGLE
     Route: 042
     Dates: start: 20090116, end: 20090116
  4. ALBUTEROL [Concomitant]
     Indication: DRUG USE FOR UNKNOWN INDICATION
     Dosage: UNK
     Dates: end: 20090116
  5. PREDNISONE [Concomitant]
     Indication: DRUG USE FOR UNKNOWN INDICATION
     Dosage: 10 MG, QD
     Dates: start: 20090116
  6. FENTANYL-75 [Concomitant]
     Indication: DRUG USE FOR UNKNOWN INDICATION
     Dosage: 100 UG PER HR
     Route: 062
  7. REGULAR INSULIN [Concomitant]
     Indication: DRUG USE FOR UNKNOWN INDICATION
     Dosage: UNK, Q 4 HRS
  8. NOVOLIN                            /00030501/ [Concomitant]
     Indication: DRUG USE FOR UNKNOWN INDICATION
     Dosage: 20 UNITS, BID
  9. VALIUM [Concomitant]
     Indication: DRUG USE FOR UNKNOWN INDICATION
     Dosage: 5 MG, BID PRN
  10. DEMEROL [Concomitant]
     Indication: DRUG USE FOR UNKNOWN INDICATION
     Dosage: 50 MG, Q 4-6 HRS PRN
     Route: 042
  11. REGLAN [Concomitant]
     Indication: DRUG USE FOR UNKNOWN INDICATION
     Dosage: UNK, Q 6 HRS
     Route: 042

REACTIONS (2)
  - INCORRECT ROUTE OF DRUG ADMINISTRATION [None]
  - INJECTION SITE IRRITATION [None]
